FAERS Safety Report 6469485-3 (Version None)
Quarter: 2009Q4

REPORT INFORMATION
  Report Type: 
  Country: None (occurrence: None)
  Receive Date: 20091203
  Receipt Date: 20091125
  Transmission Date: 20100525
  Serious: Yes (Hospitalization)
  Sender: FDA-Public Use
  Company Number: IL-BRISTOL-MYERS SQUIBB COMPANY-14876437

PATIENT
  Age: 39 Year
  Sex: Male

DRUGS (3)
  1. BARACLUDE [Suspect]
  2. ENALADEX [Concomitant]
  3. NORMALOL [Concomitant]

REACTIONS (1)
  - HEPATITIS [None]
